FAERS Safety Report 15049684 (Version 1)
Quarter: 2018Q2

REPORT INFORMATION
  Report Type: Spontaneous
  Country: US (occurrence: US)
  Receive Date: 20180622
  Receipt Date: 20180622
  Transmission Date: 20180711
  Serious: No
  Sender: FDA-Public Use
  Company Number: US-ADAMAS PHARMA, LLC-2018ADA00838

PATIENT
  Sex: Male

DRUGS (1)
  1. GOCOVRI [Suspect]
     Active Substance: AMANTADINE
     Dosage: UNK

REACTIONS (3)
  - Vitreous floaters [Unknown]
  - Vision blurred [Unknown]
  - Erythropsia [Unknown]
